FAERS Safety Report 20513842 (Version 1)
Quarter: 2022Q1

REPORT INFORMATION
  Report Type: Spontaneous
  Country: US (occurrence: None)
  Receive Date: 20220224
  Receipt Date: 20220224
  Transmission Date: 20220423
  Serious: Yes (Other)
  Sender: FDA-Public Use
  Company Number: None

PATIENT
  Age: 87 Year
  Sex: Female
  Weight: 65.77 kg

DRUGS (10)
  1. NEOMYCIN AND POLYMYXIN B SULFATES AND HYDROCORTISONE OTIC SUSPENSION [Suspect]
     Active Substance: HYDROCORTISONE\NEOMYCIN SULFATE\POLYMYXIN B SULFATE
     Indication: Bacterial infection
     Route: 001
     Dates: start: 20220127, end: 20220127
  2. ATORVASTATIN [Concomitant]
     Active Substance: ATORVASTATIN
  3. CENTRIUM SILVER VITAMINS [Concomitant]
  4. CALCIUM [Concomitant]
     Active Substance: CALCIUM
  5. ZINC [Concomitant]
     Active Substance: ZINC
  6. VITAMIN D [Concomitant]
     Active Substance: VITAMIN D NOS
  7. STOOL SOFTENER (DOCUSATE) [Concomitant]
     Active Substance: DOCUSATE
  8. ASPIRIN [Concomitant]
     Active Substance: ASPIRIN
  9. EYE VIT [Concomitant]
  10. VITAMINS [Concomitant]
     Active Substance: VITAMINS

REACTIONS (4)
  - Ear pain [None]
  - Hypoacusis [None]
  - Ear discomfort [None]
  - Ear discomfort [None]

NARRATIVE: CASE EVENT DATE: 20220127
